FAERS Safety Report 9106896 (Version 1)
Quarter: 2013Q1

REPORT INFORMATION
  Report Type: Report from Study
  Country: US (occurrence: US)
  Receive Date: 20130221
  Receipt Date: 20130221
  Transmission Date: 20140127
  Serious: Yes (Other)
  Sender: FDA-Public Use
  Company Number: US-ABBOTT-13P-163-1048871-00

PATIENT
  Sex: Female
  Weight: 74.91 kg

DRUGS (2)
  1. HUMIRA [Suspect]
     Indication: CROHN^S DISEASE
     Dates: start: 2008, end: 201212
  2. HUMIRA [Suspect]

REACTIONS (6)
  - Dysuria [Recovered/Resolved]
  - Systemic lupus erythematosus [Unknown]
  - Nephrolithiasis [Recovered/Resolved]
  - Kidney infection [Recovered/Resolved]
  - Blood urine present [Recovered/Resolved]
  - Back pain [Recovered/Resolved]
